FAERS Safety Report 9139448 (Version 1)
Quarter: 2013Q1

REPORT INFORMATION
  Report Type: Spontaneous
  Country: US (occurrence: US)
  Receive Date: 20130305
  Receipt Date: 20130305
  Transmission Date: 20140127
  Serious: No
  Sender: FDA-Public Use
  Company Number: US-PFIZER INC-2013072069

PATIENT
  Age: 59 Year
  Sex: Male
  Weight: 90.7 kg

DRUGS (3)
  1. ZYVOX [Suspect]
     Indication: OSTEOMYELITIS
     Dosage: 600 MG, 2X/DAY
     Dates: start: 201302
  2. LISINOPRIL [Concomitant]
     Indication: BLOOD PRESSURE ABNORMAL
     Dosage: 20 MG, 1X/DAY
  3. PRILOSEC [Concomitant]
     Indication: GASTROOESOPHAGEAL REFLUX DISEASE
     Dosage: UNK

REACTIONS (5)
  - Off label use [Unknown]
  - Diarrhoea [Unknown]
  - Drug level increased [Unknown]
  - Asthenia [Unknown]
  - Urine odour abnormal [Unknown]
